FAERS Safety Report 22173730 (Version 2)
Quarter: 2023Q4

REPORT INFORMATION
  Report Type: Report from Study
  Country: CA (occurrence: CA)
  Receive Date: 20230404
  Receipt Date: 20231108
  Transmission Date: 20240110
  Serious: Yes (Other)
  Sender: FDA-Public Use
  Company Number: CA-BAUSCH-BL-2023-005235

PATIENT
  Age: 59 Year
  Sex: Male

DRUGS (3)
  1. SILIQ [Suspect]
     Active Substance: BRODALUMAB
     Indication: Psoriasis
     Dosage: 210MG /1.5 ML , WEEKLY, WEEK: 0, 1, 2
     Route: 058
     Dates: start: 20210825, end: 202109
  2. SILIQ [Suspect]
     Active Substance: BRODALUMAB
     Dosage: 210MG /1.5 ML, Q2 WEEKS, ON HOLD
     Route: 058
     Dates: end: 2023
  3. SILIQ [Suspect]
     Active Substance: BRODALUMAB
     Dosage: 210MG /1.5 ML, RE-INDUCTION
     Route: 058
     Dates: start: 20231101

REACTIONS (3)
  - Renal transplant [Unknown]
  - Intentional product use issue [Unknown]
  - Off label use [Unknown]

NARRATIVE: CASE EVENT DATE: 20230101
